FAERS Safety Report 24116815 (Version 2)
Quarter: 2024Q3

REPORT INFORMATION
  Report Type: Spontaneous
  Country: US (occurrence: US)
  Receive Date: 20240722
  Receipt Date: 20240925
  Transmission Date: 20241016
  Serious: Yes (Other)
  Sender: ASTELLAS
  Company Number: US-ASTELLAS-2024US017397

PATIENT
  Age: 91 Year
  Sex: Male

DRUGS (1)
  1. MYRBETRIQ [Suspect]
     Active Substance: MIRABEGRON
     Indication: Bladder disorder
     Dosage: 25 MG, ONCE DAILY
     Route: 048
     Dates: start: 20240417, end: 20240613

REACTIONS (1)
  - Corneal abrasion [Recovered/Resolved]

NARRATIVE: CASE EVENT DATE: 20240101
